FAERS Safety Report 5080439-4 (Version None)
Quarter: 2006Q3

REPORT INFORMATION
  Report Type: 
  Country: None (occurrence: None)
  Receive Date: 20060815
  Receipt Date: 20010613
  Transmission Date: 20061208
  Serious: Yes (Hospitalization)
  Sender: FDA-Public Use
  Company Number: FR-SOLVAY-00201004063

PATIENT
  Age: 25298 Day
  Sex: Male

DRUGS (6)
  1. BI-TILDIEM [Concomitant]
     Indication: ILL-DEFINED DISORDER
     Dosage: DAILY DOSE: UNK. FREQUENCY:UNKNOWN
     Route: 065
  2. COVERSYL [Suspect]
     Indication: CARDIAC FAILURE CONGESTIVE
     Dosage: DAILY DOSE: 4 MG.
     Route: 048
     Dates: start: 20001221
  3. BURINEX [Concomitant]
     Indication: ILL-DEFINED DISORDER
     Dosage: DAILY DOSE: UNK. FREQUENCY:UNKNOWN
     Route: 065
     Dates: end: 20001001
  4. ASPEGIC 1000 [Concomitant]
     Indication: ILL-DEFINED DISORDER
     Dosage: DAILY DOSE: UNK. FREQUENCY:UNKNOWN
     Route: 065
     Dates: end: 20001001
  5. PROSCAR [Concomitant]
     Indication: ILL-DEFINED DISORDER
     Dosage: DAILY DOSE: UNK. FREQUENCY:UNKNOWN
     Route: 065
     Dates: end: 20001001
  6. ASPIRIN [Concomitant]
     Indication: ILL-DEFINED DISORDER
     Dosage: DAILY DOSE: UNK. FREQUENCY:UNKNOWN
     Route: 065

REACTIONS (3)
  - CARDIAC FAILURE [None]
  - SUPERINFECTION [None]
  - SUPERINFECTION LUNG [None]
